FAERS Safety Report 8054260-9 (Version None)
Quarter: 2012Q1

REPORT INFORMATION
  Report Type: 
  Country: None (occurrence: None)
  Receive Date: 20120118
  Receipt Date: 20120110
  Transmission Date: 20120608
  Serious: Yes (Other)
  Sender: FDA-Public Use
  Company Number: PHEH2012US001521

PATIENT
  Sex: Female

DRUGS (17)
  1. CHOLECALCIFEROL [Concomitant]
  2. PREVACID [Concomitant]
  3. LISINOPRIL [Concomitant]
  4. PREDNISONE [Concomitant]
  5. GLEEVEC [Suspect]
     Indication: ACUTE LYMPHOCYTIC LEUKAEMIA
     Dosage: 400 MG, QD
     Route: 048
  6. COMPAZINE [Concomitant]
  7. ALBUTEROL [Concomitant]
  8. LASIX [Concomitant]
  9. POTASSIUM CHLORIDE [Concomitant]
  10. CALCIUM CARBONATE [Concomitant]
  11. ZOVIRAX [Concomitant]
  12. ZOCOR [Concomitant]
  13. MAGNESIUM OXIDE [Concomitant]
  14. LORAZEPAM [Concomitant]
  15. LIDOCAINE [Concomitant]
  16. NEURONTIN [Concomitant]
  17. MULTI-VITAMINS [Concomitant]

REACTIONS (5)
  - PAIN [None]
  - OEDEMA [None]
  - WEIGHT INCREASED [None]
  - DIARRHOEA [None]
  - INFECTION [None]
